FAERS Safety Report 6158786-4 (Version None)
Quarter: 2009Q2

REPORT INFORMATION
  Report Type: 
  Country: None (occurrence: None)
  Receive Date: 20090414
  Receipt Date: 20080331
  Transmission Date: 20091009
  Serious: Yes (Hospitalization)
  Sender: FDA-Public Use
  Company Number: 2008-02224

PATIENT
  Age: 78 Year
  Sex: Female

DRUGS (1)
  1. FERRLECIT [Suspect]
     Dosage: 125 MG (DILUTED) OVER 1 HR, INTRAVENOUS
     Route: 042
     Dates: start: 20080320

REACTIONS (2)
  - HUNGER [None]
  - SYNCOPE [None]
